FAERS Safety Report 22537979 (Version 1)
Quarter: 2023Q2

REPORT INFORMATION
  Report Type: Spontaneous
  Country: IL (occurrence: None)
  Receive Date: 20230608
  Receipt Date: 20230608
  Transmission Date: 20230722
  Serious: Yes (Other)
  Sender: FDA-Public Use
  Company Number: IL-Eisai Medical Research-EC-2023-141595

PATIENT
  Sex: Male

DRUGS (3)
  1. LENVIMA [Suspect]
     Active Substance: LENVATINIB
     Indication: Metastatic renal cell carcinoma
     Dosage: UNKNOWN DOSE AND FREQUENCY
     Route: 048
  2. LENVIMA [Suspect]
     Active Substance: LENVATINIB
     Dosage: DOSE REDUCED (UNKNOWN DOSE AND FREQUENCY)
     Route: 048
  3. KEYTRUDA [Suspect]
     Active Substance: PEMBROLIZUMAB
     Indication: Metastatic renal cell carcinoma
     Dosage: UNKNOWN DOSE AND FREQUENCY
     Route: 041

REACTIONS (2)
  - Hepatitis [Recovered/Resolved]
  - Hepatic enzyme increased [Unknown]
